FAERS Safety Report 7573135-2 (Version None)
Quarter: 2011Q2

REPORT INFORMATION
  Report Type: 
  Country: None (occurrence: None)
  Receive Date: 20110627
  Receipt Date: 20110623
  Transmission Date: 20111010
  Serious: Yes (Other)
  Sender: FDA-Public Use
  Company Number: US-BRISTOL-MYERS SQUIBB COMPANY-15852825

PATIENT
  Age: 92 Year
  Sex: Female

DRUGS (2)
  1. WARFARIN SODIUM [Suspect]
     Dosage: TABS,RX# 110633008620
  2. ASPIRIN [Suspect]
     Dosage: 1 DF = INITIATED AT A DOSAGE OF 81 MG AND DOSE INCREASED TO 325MG

REACTIONS (2)
  - EPISTAXIS [None]
  - BLINDNESS TRANSIENT [None]
